FAERS Safety Report 8890722 (Version 1)
Quarter: 2012Q4

REPORT INFORMATION
  Report Type: 
  Country: US (occurrence: US)
  Receive Date: 20121107
  Receipt Date: 20121107
  Transmission Date: 20130627
  Serious: Yes (Death)
  Sender: FDA-Public Use
  Company Number: US-ASTELLAS-2012US010448

PATIENT
  Age: 82 Year
  Sex: Female

DRUGS (1)
  1. TARCEVA [Suspect]
     Indication: LUNG NEOPLASM MALIGNANT
     Dosage: 100 mg, UID/QD
     Route: 048
     Dates: start: 20090723, end: 20121001

REACTIONS (3)
  - Incorrect dose administered [Unknown]
  - Respiratory failure [Fatal]
  - Malignant neoplasm progression [Fatal]
